FAERS Safety Report 17203327 (Version 1)
Quarter: 2019Q4

REPORT INFORMATION
  Report Type: Spontaneous
  Country: PL (occurrence: PL)
  Receive Date: 20191226
  Receipt Date: 20191226
  Transmission Date: 20200122
  Serious: Yes (Hospitalization, Other)
  Sender: FDA-Public Use
  Company Number: PL-MYLANLABS-2019M1126477

PATIENT

DRUGS (9)
  1. CEFUROXIME. [Suspect]
     Active Substance: CEFUROXIME
     Indication: BACTERIURIA
     Dosage: UNK
     Route: 065
  2. ARIPIPRAZOLE. [Concomitant]
     Active Substance: ARIPIPRAZOLE
     Indication: PRODUCT USED FOR UNKNOWN INDICATION
     Dosage: 7.5 MILLIGRAM
     Route: 065
  3. OLANZAPINE. [Suspect]
     Active Substance: OLANZAPINE
     Indication: BIPOLAR DISORDER
     Dosage: 10 MILLIGRAM
     Route: 065
  4. AMOXICILLIN/CLAVULANIC ACID [Suspect]
     Active Substance: AMOXICILLIN\CLAVULANIC ACID
     Indication: BACTERIURIA
     Dosage: UNK
     Route: 065
  5. SULFAMETHOXAZOLE W/TRIMETHOPRIM [Suspect]
     Active Substance: SULFAMETHOXAZOLE\TRIMETHOPRIM
     Indication: BACTERIURIA
     Dosage: UNK
     Route: 065
  6. CIPROFLOXACIN. [Suspect]
     Active Substance: CIPROFLOXACIN
     Indication: BACTERIURIA
     Dosage: UNK
     Route: 065
  7. PANTOPRAZOLE [Suspect]
     Active Substance: PANTOPRAZOLE
     Indication: REFLUX GASTRITIS
     Dosage: 10 MILLIGRAM PER DAY
     Route: 065
  8. ITOPRIDE [Interacting]
     Active Substance: ITOPRIDE
     Indication: REFLUX GASTRITIS
     Dosage: 50 MILLIGRAM
     Route: 065
  9. LEVOFLOXACIN. [Suspect]
     Active Substance: LEVOFLOXACIN
     Indication: BACTERIURIA
     Dosage: UNK
     Route: 065

REACTIONS (6)
  - Potentiating drug interaction [Unknown]
  - Trimethylaminuria [Unknown]
  - Condition aggravated [Unknown]
  - Dysbiosis [Unknown]
  - Drug interaction [Unknown]
  - Clostridium difficile infection [Unknown]
